FAERS Safety Report 4989294-1 (Version None)
Quarter: 2006Q2

REPORT INFORMATION
  Report Type: 
  Country: None (occurrence: None)
  Receive Date: 20060426
  Receipt Date: 20060417
  Transmission Date: 20061013
  Serious: Yes (Life-Threatening, Hospitalization)
  Sender: FDA-Public Use
  Company Number: 200610482GDS

PATIENT
  Age: 46 Year
  Sex: Male

DRUGS (3)
  1. CIPROFLOXACIN [Suspect]
     Indication: CELLULITIS
     Dosage: 500 MG, BID, ORAL
     Route: 048
     Dates: start: 20050126, end: 20050131
  2. FUROSEMIDE [Concomitant]
  3. METFORMIN [Concomitant]

REACTIONS (5)
  - DYSPNOEA [None]
  - EOSINOPHILS URINE [None]
  - HYPERKALAEMIA [None]
  - NEPHRITIS INTERSTITIAL [None]
  - RENAL FAILURE ACUTE [None]
